FAERS Safety Report 20525597 (Version 2)
Quarter: 2022Q1

REPORT INFORMATION
  Report Type: Report from Study
  Country: HU (occurrence: HU)
  Receive Date: 20220228
  Receipt Date: 20220318
  Transmission Date: 20220424
  Serious: Yes (Other)
  Sender: FDA-Public Use
  Company Number: HU-NOVARTISPH-NVSC2021HU228193

PATIENT
  Age: 43 Year
  Sex: Female
  Weight: 126 kg

DRUGS (3)
  1. KISQALI [Suspect]
     Active Substance: RIBOCICLIB
     Indication: Breast cancer
     Dosage: 400 MG
     Route: 048
     Dates: start: 20210909
  2. KISQALI [Suspect]
     Active Substance: RIBOCICLIB
     Dosage: 100 MG (1 DF/TABLET), QD
     Route: 048
     Dates: start: 20211214, end: 20211220
  3. ZOLADEX [Concomitant]
     Active Substance: GOSERELIN ACETATE
     Indication: Product used for unknown indication
     Dosage: UNK (1 AMPULE)
     Route: 030
     Dates: start: 20210909

REACTIONS (7)
  - Leukopenia [Unknown]
  - Neutropenia [Unknown]
  - Breast cancer [Not Recovered/Not Resolved]
  - Malignant neoplasm progression [Not Recovered/Not Resolved]
  - Metastases to liver [Not Recovered/Not Resolved]
  - White blood cell count decreased [Unknown]
  - Hepatic enzyme increased [Unknown]

NARRATIVE: CASE EVENT DATE: 20211220
